FAERS Safety Report 12680680 (Version 1)
Quarter: 2016Q3

REPORT INFORMATION
  Report Type: Report from Study
  Country: US (occurrence: US)
  Receive Date: 20160824
  Receipt Date: 20160824
  Transmission Date: 20161109
  Serious: No
  Sender: FDA-Public Use
  Company Number: US-AMGEN-USASL2016106534

PATIENT
  Age: 42 Year
  Sex: Female

DRUGS (1)
  1. ENBREL [Suspect]
     Active Substance: ETANERCEPT
     Indication: RHEUMATOID ARTHRITIS
     Dosage: 50 MG, UNK
     Route: 065
     Dates: start: 20160303

REACTIONS (10)
  - Blood disorder [Unknown]
  - Memory impairment [Unknown]
  - Inflammation [Not Recovered/Not Resolved]
  - Weight increased [Recovering/Resolving]
  - Peripheral swelling [Unknown]
  - Hypotension [Unknown]
  - Increased tendency to bruise [Unknown]
  - Pain [Unknown]
  - Musculoskeletal disorder [Unknown]
  - Skin mass [Recovering/Resolving]

NARRATIVE: CASE EVENT DATE: 2016
